FAERS Safety Report 9136649 (Version 1)
Quarter: 2013Q1

REPORT INFORMATION
  Report Type: Spontaneous
  Country: US (occurrence: US)
  Receive Date: 20130304
  Receipt Date: 20130304
  Transmission Date: 20140127
  Serious: No
  Sender: FDA-Public Use
  Company Number: US-ABBOTT-12P-163-0999197-00

PATIENT
  Sex: Male

DRUGS (6)
  1. ANDROGEL [Suspect]
     Indication: BLOOD TESTOSTERONE DECREASED
     Dosage: 1 PACKET
     Route: 061
     Dates: start: 2007, end: 2011
  2. ANDROGEL [Suspect]
     Dosage: 2 PACKETS
     Route: 061
     Dates: start: 2011
  3. LOSARTAN [Concomitant]
     Indication: HYPERTENSION
  4. CIALIS [Concomitant]
     Indication: ERECTILE DYSFUNCTION
  5. SIMVASTATIN [Concomitant]
     Indication: BLOOD CHOLESTEROL INCREASED
  6. ROGAINE [Concomitant]
     Indication: ALOPECIA
     Route: 061

REACTIONS (1)
  - Application site reaction [Not Recovered/Not Resolved]
